FAERS Safety Report 17299798 (Version 1)
Quarter: 2020Q1

REPORT INFORMATION
  Report Type: Spontaneous
  Country: US (occurrence: US)
  Receive Date: 20200121
  Receipt Date: 20200121
  Transmission Date: 20200409
  Serious: Yes (Disabling)
  Sender: FDA-Public Use
  Company Number: None

PATIENT
  Age: 36 Year
  Sex: Female
  Weight: 56.7 kg

DRUGS (4)
  1. D-MANNOSE [Concomitant]
  2. APPLE CIDER VINEGAR [Concomitant]
     Active Substance: APPLE CIDER VINEGAR
  3. AMOXICILLIN. [Suspect]
     Active Substance: AMOXICILLIN
     Indication: INFECTION PROPHYLAXIS
     Dosage: ?          QUANTITY:2 CAPSULE(S);?
     Route: 048
     Dates: start: 20200120, end: 20200120
  4. CRANBERRY. [Concomitant]
     Active Substance: CRANBERRY

REACTIONS (5)
  - Depression [None]
  - Tendonitis [None]
  - Pain [None]
  - Arthralgia [None]
  - Anger [None]

NARRATIVE: CASE EVENT DATE: 20200120
